FAERS Safety Report 7280591-6 (Version None)
Quarter: 2011Q1

REPORT INFORMATION
  Report Type: 
  Country: None (occurrence: None)
  Receive Date: 20110208
  Receipt Date: 20110125
  Transmission Date: 20110831
  Serious: Yes (Death)
  Sender: FDA-Public Use
  Company Number: DE-GENENTECH-311569

PATIENT
  Sex: Male
  Weight: 71.5 kg

DRUGS (14)
  1. BENDAMUSTINE [Suspect]
     Dosage: 100 MG, UNK
     Route: 042
  2. PANTOZOL [Concomitant]
     Indication: NON-HODGKIN'S LYMPHOMA
     Dosage: 40 MG, UNK
     Dates: start: 20100508
  3. PANTOZOL [Concomitant]
     Dosage: 40 MG, UNK
  4. RITUXIMAB [Suspect]
     Dosage: 750 MG, UNK
     Route: 042
  5. BENDAMUSTINE [Suspect]
     Indication: NON-HODGKIN'S LYMPHOMA
     Dosage: 180 MG, UNK
     Route: 042
     Dates: start: 20091119, end: 20100420
  6. SPIRONOLACTONE [Concomitant]
     Indication: PRODUCT USED FOR UNKNOWN INDICATION
     Dosage: UNK
  7. RITUXIMAB [Suspect]
     Indication: NON-HODGKIN'S LYMPHOMA
     Dosage: 750 MG, UNK
     Route: 042
     Dates: start: 20091118, end: 20100419
  8. BENDAMUSTINE [Suspect]
     Dosage: 135 MG, UNK
     Route: 042
  9. PANTOZOL [Concomitant]
     Dosage: 40 MG, BID
     Dates: start: 20101122
  10. NOVALGIN [Concomitant]
     Indication: PRODUCT USED FOR UNKNOWN INDICATION
     Dosage: UNK
     Dates: start: 20101213
  11. KALINOR [Concomitant]
     Dosage: 1 DF, BID
     Dates: start: 20101122
  12. KALINOR [Concomitant]
     Dosage: 1 DF, BID
     Dates: start: 20101110
  13. KALINOR [Concomitant]
     Indication: PRODUCT USED FOR UNKNOWN INDICATION
     Dosage: 1 DF, TID
     Dates: start: 20100508, end: 20101109
  14. KALINOR [Concomitant]
     Dosage: 1 DF, TID

REACTIONS (4)
  - LEUKOPENIA [None]
  - ANAL ABSCESS [None]
  - SEPSIS [None]
  - PNEUMONIA [None]
